FAERS Safety Report 25182543 (Version 1)
Quarter: 2025Q2

REPORT INFORMATION
  Report Type: Spontaneous
  Country: US (occurrence: US)
  Receive Date: 20250410
  Receipt Date: 20250410
  Transmission Date: 20250717
  Serious: No
  Sender: OPTINOSE INC
  Company Number: US-OptiNose US, Inc-2024OPT000088

PATIENT
  Age: 60 Year
  Sex: Female

DRUGS (4)
  1. XHANCE [Suspect]
     Active Substance: FLUTICASONE PROPIONATE
     Indication: Nasal polyps
     Route: 045
     Dates: start: 20240220, end: 20240716
  2. XHANCE [Suspect]
     Active Substance: FLUTICASONE PROPIONATE
     Indication: Paranasal sinus polypectomy
  3. DEVICE [Suspect]
     Active Substance: DEVICE
     Indication: Nasal polyps
  4. DEVICE [Suspect]
     Active Substance: DEVICE
     Indication: Paranasal sinus polypectomy

REACTIONS (3)
  - Staphylococcal infection [Recovering/Resolving]
  - Epistaxis [Recovering/Resolving]
  - Product use in unapproved indication [Unknown]

NARRATIVE: CASE EVENT DATE: 20240718
